FAERS Safety Report 22000331 (Version 1)
Quarter: 2023Q1

REPORT INFORMATION
  Report Type: Spontaneous
  Country: IT (occurrence: IT)
  Receive Date: 20230216
  Receipt Date: 20230216
  Transmission Date: 20230418
  Serious: Yes (Other)
  Sender: FDA-Public Use
  Company Number: IT-MINISAL02-907297

PATIENT
  Age: 71 Year
  Sex: Female
  Weight: 65 kg

DRUGS (6)
  1. TEMOZOLOMIDE [Suspect]
     Active Substance: TEMOZOLOMIDE
     Indication: Large cell lung cancer
     Dosage: 250 MILLIGRAM, DAILY
     Route: 048
     Dates: start: 20211222, end: 20211226
  2. CAPECITABINE [Suspect]
     Active Substance: CAPECITABINE
     Indication: Neuroendocrine carcinoma
     Dosage: 2500 MILLIGRAM, DAILY
     Route: 048
     Dates: start: 20211213, end: 20211226
  3. ONDANSETRON [Concomitant]
     Active Substance: ONDANSETRON
     Indication: Product used for unknown indication
     Dosage: 8 MILLIGRAM, DAILY
     Route: 048
     Dates: start: 20211222, end: 20211226
  4. LEVOTHYROXINE SODIUM [Concomitant]
     Active Substance: LEVOTHYROXINE SODIUM
     Indication: Product used for unknown indication
     Dosage: 100 MICROGRAM DAILY
     Route: 048
  5. LANSOPRAZOLE [Concomitant]
     Active Substance: LANSOPRAZOLE
     Indication: Product used for unknown indication
     Dosage: 30 MILLIGRAM, DAILY
     Route: 048
  6. ALPRAZOLAM [Concomitant]
     Active Substance: ALPRAZOLAM
     Indication: Product used for unknown indication
     Dosage: 0.75 MILLIGRAM PER MILLILITRE, BID
     Route: 048

REACTIONS (10)
  - Decreased appetite [Unknown]
  - Asthenia [Unknown]
  - Back pain [Recovering/Resolving]
  - Dyspnoea [Recovered/Resolved]
  - Leukocytosis [Recovered/Resolved]
  - Constipation [Unknown]
  - C-reactive protein increased [Recovered/Resolved]
  - Pneumonitis [Recovering/Resolving]
  - Pyrexia [Recovered/Resolved]
  - Productive cough [Recovering/Resolving]

NARRATIVE: CASE EVENT DATE: 20221214
